FAERS Safety Report 6756214-9 (Version None)
Quarter: 2010Q2

REPORT INFORMATION
  Report Type: 
  Country: None (occurrence: None)
  Receive Date: 20100604
  Receipt Date: 20100601
  Transmission Date: 20101027
  Serious: Yes (Death)
  Sender: FDA-Public Use
  Company Number: PHHY2010US35646

PATIENT
  Sex: Female
  Weight: 136.5 kg

DRUGS (1)
  1. EXJADE [Suspect]
     Indication: NEOPLASM
     Dosage: 500 MG, TID
     Route: 048
     Dates: start: 20091231

REACTIONS (1)
  - BONE MARROW DISORDER [None]
